FAERS Safety Report 7831645-4 (Version None)
Quarter: 2011Q4

REPORT INFORMATION
  Report Type: 
  Country: None (occurrence: None)
  Receive Date: 20111021
  Receipt Date: 20111013
  Transmission Date: 20120403
  Serious: Yes (Other)
  Sender: FDA-Public Use
  Company Number: US-ABBOTT-11P-163-0863822-06

PATIENT
  Sex: Female

DRUGS (14)
  1. LANTUS [Concomitant]
     Indication: DIABETES MELLITUS
     Dosage: AT BEDTIME
     Dates: start: 20070101
  2. HUMIRA [Suspect]
     Route: 058
  3. STOMATOLOGICALS, MOUTH PREPARATIONS [Concomitant]
     Indication: PRODUCT USED FOR UNKNOWN INDICATION
     Dates: start: 20100127
  4. FLINTSTONES MULTIPLE VITAMINS [Concomitant]
     Indication: VITAMIN SUPPLEMENTATION
     Dates: start: 20060101
  5. CALCIUM CARBONATE [Concomitant]
     Indication: MINERAL SUPPLEMENTATION
     Dates: start: 20080122
  6. HUMIRA [Suspect]
     Indication: CROHN'S DISEASE
     Dosage: 160 MG (BASELINE)/80 MG (WEEK 2)
     Route: 058
     Dates: start: 20080222, end: 20080222
  7. MAGNESIUM OXIDE [Concomitant]
     Indication: PRODUCT USED FOR UNKNOWN INDICATION
     Dates: start: 20091019
  8. CIMZIA [Concomitant]
     Indication: CROHN'S DISEASE
     Route: 058
     Dates: start: 20100331
  9. TYSABRI [Concomitant]
     Indication: CROHN'S DISEASE
     Dosage: 300MG/15ML
     Dates: start: 20110101
  10. ALBUTEROL [Concomitant]
     Indication: PRODUCT USED FOR UNKNOWN INDICATION
     Dates: start: 20091123
  11. HUMIRA [Suspect]
     Route: 058
     Dates: end: 20100316
  12. ULTRAM [Concomitant]
     Indication: PAIN
     Dates: start: 20090902
  13. FOLIC ACID [Concomitant]
     Indication: VITAMIN SUPPLEMENTATION
     Dates: start: 20040919
  14. HUMALOG [Concomitant]
     Indication: DIABETES MELLITUS
     Dosage: SLIDING SCALE - MAXIMUM DOSE 20 U
     Dates: start: 20060101

REACTIONS (2)
  - DEAFNESS NEUROSENSORY [None]
  - NERVOUS SYSTEM DISORDER [None]
